FAERS Safety Report 7065163-0 (Version None)
Quarter: 2010Q4

REPORT INFORMATION
  Report Type: 
  Country: None (occurrence: None)
  Receive Date: 20101027
  Receipt Date: 19930617
  Transmission Date: 20110411
  Serious: Yes (Death)
  Sender: FDA-Public Use
  Company Number: US-ROCHE-930201107002

PATIENT
  Age: 63 Year
  Sex: Male
  Weight: 67.1 kg

DRUGS (12)
  1. VERSED [Suspect]
     Indication: LIGHT ANAESTHESIA
     Route: 042
     Dates: start: 19930310, end: 19930310
  2. ASPIRIN [Concomitant]
     Route: 065
  3. CALCIUM ACETATE [Concomitant]
     Route: 065
  4. DOCUSATE SODIUM [Concomitant]
     Route: 065
  5. HEPARIN [Concomitant]
     Route: 065
  6. METRONIDAZOLE [Concomitant]
     Route: 065
  7. MULTI-VITAMINS [Concomitant]
     Route: 065
  8. SODIUM BICARBONATE [Concomitant]
     Route: 065
  9. VANCOMYCIN [Concomitant]
     Route: 065
  10. ACETAMINOPHEN [Concomitant]
     Route: 065
  11. METAPROTERENOL SULFATE [Concomitant]
     Route: 065
  12. TRIAMCINOLONE [Concomitant]
     Route: 055

REACTIONS (2)
  - DEATH [None]
  - SOMNOLENCE [None]
